FAERS Safety Report 16682329 (Version 1)
Quarter: 2019Q3

REPORT INFORMATION
  Report Type: Spontaneous
  Country: CA (occurrence: CA)
  Receive Date: 20190808
  Receipt Date: 20190808
  Transmission Date: 20191004
  Serious: Yes (Other)
  Sender: FDA-Public Use
  Company Number: CA-PFIZER INC-2019337111

PATIENT
  Age: 74 Year
  Sex: Female

DRUGS (2)
  1. CBD OIL [Concomitant]
     Active Substance: CANNABIDIOL\HERBALS
     Indication: PAIN
     Dosage: UNK UNK, AS NEEDED (QHS)
  2. METHOTREXATE SODIUM. [Suspect]
     Active Substance: METHOTREXATE SODIUM
     Dosage: UNK
     Dates: start: 2019

REACTIONS (4)
  - Muscle rupture [Unknown]
  - Drug ineffective [Unknown]
  - Scleroderma [Unknown]
  - Carpal tunnel syndrome [Unknown]
